FAERS Safety Report 17295198 (Version 6)
Quarter: 2020Q4

REPORT INFORMATION
  Report Type: Spontaneous
  Country: US (occurrence: US)
  Receive Date: 20200121
  Receipt Date: 20201013
  Transmission Date: 20210113
  Serious: Yes (Other)
  Sender: FDA-Public Use
  Company Number: US-PFIZER INC-2020022859

PATIENT
  Age: 57 Year
  Sex: Female

DRUGS (2)
  1. XELJANZ XR [Suspect]
     Active Substance: TOFACITINIB CITRATE
     Indication: RHEUMATOID ARTHRITIS
     Dosage: 11 MG, DAILY
     Route: 048
     Dates: start: 20191206
  2. METHOTREXATE. [Concomitant]
     Active Substance: METHOTREXATE
     Dosage: UNK

REACTIONS (21)
  - Increased viscosity of upper respiratory secretion [Unknown]
  - Throat irritation [Unknown]
  - Joint dislocation [Unknown]
  - Therapeutic product effect incomplete [Unknown]
  - Oral herpes [Unknown]
  - Sinus congestion [Unknown]
  - Oropharyngeal pain [Not Recovered/Not Resolved]
  - Joint swelling [Unknown]
  - Headache [Not Recovered/Not Resolved]
  - Peripheral coldness [Unknown]
  - Hypoaesthesia [Unknown]
  - Condition aggravated [Not Recovered/Not Resolved]
  - Nasopharyngitis [Unknown]
  - Muscle spasms [Unknown]
  - Feeling abnormal [Unknown]
  - Sinus disorder [Not Recovered/Not Resolved]
  - Joint stiffness [Unknown]
  - Depressed mood [Unknown]
  - Dizziness [Not Recovered/Not Resolved]
  - Arthropathy [Unknown]
  - Urinary tract infection [Unknown]

NARRATIVE: CASE EVENT DATE: 20191206
